FAERS Safety Report 10682335 (Version 1)
Quarter: 2014Q4

REPORT INFORMATION
  Report Type: Spontaneous
  Country: US (occurrence: None)
  Receive Date: 20141229
  Receipt Date: 20141229
  Transmission Date: 20150529
  Serious: Yes (Other)
  Sender: FDA-Public Use
  Company Number: None

PATIENT
  Age: 30 Year
  Sex: Female
  Weight: 56.7 kg

DRUGS (2)
  1. XYREM [Suspect]
     Active Substance: SODIUM OXYBATE
     Indication: NARCOLEPSY
     Route: 048
  2. XYREM [Suspect]
     Active Substance: SODIUM OXYBATE
     Indication: SOMNOLENCE
     Route: 048

REACTIONS (7)
  - Nausea [None]
  - Paranoia [None]
  - Somnolence [None]
  - Panic attack [None]
  - Vomiting [None]
  - Hallucination, auditory [None]
  - Paralysis [None]

NARRATIVE: CASE EVENT DATE: 20141114
